FAERS Safety Report 13753347 (Version 1)
Quarter: 2017Q3

REPORT INFORMATION
  Report Type: Spontaneous
  Country: US (occurrence: US)
  Receive Date: 20170712
  Receipt Date: 20170712
  Transmission Date: 20171127
  Serious: Yes (Hospitalization)
  Sender: FDA-Public Use
  Company Number: None

PATIENT
  Age: 72 Year
  Sex: Male
  Weight: 88.9 kg

DRUGS (16)
  1. XGEVA [Concomitant]
     Active Substance: DENOSUMAB
  2. ELIGARD [Concomitant]
     Active Substance: LEUPROLIDE ACETATE
  3. LANTUS [Concomitant]
     Active Substance: INSULIN GLARGINE
  4. INSULIN [Concomitant]
     Active Substance: INSULIN NOS
  5. PANCREASE MT [Concomitant]
     Active Substance: PANCRELIPASE
  6. OMEPRAZOLE. [Concomitant]
     Active Substance: OMEPRAZOLE
  7. ENZALUTAMIDE [Suspect]
     Active Substance: ENZALUTAMIDE
     Indication: PROSTATE CANCER
     Route: 048
     Dates: start: 20160727
  8. FUROSEMIDE. [Concomitant]
     Active Substance: FUROSEMIDE
  9. ALLOPURINOL. [Concomitant]
     Active Substance: ALLOPURINOL
  10. COENZYME Q [Concomitant]
  11. CICLOPIROX. [Concomitant]
     Active Substance: CICLOPIROX
  12. TORSEMIDE. [Concomitant]
     Active Substance: TORSEMIDE
  13. LISPRO [Concomitant]
     Active Substance: INSULIN LISPRO
  14. CARVEDILOL. [Concomitant]
     Active Substance: CARVEDILOL
  15. IRON [Concomitant]
     Active Substance: IRON
  16. FOLIC ACID. [Concomitant]
     Active Substance: FOLIC ACID

REACTIONS (3)
  - Renal colic [None]
  - Blood creatinine increased [None]
  - Citrobacter sepsis [None]

NARRATIVE: CASE EVENT DATE: 20170701
